FAERS Safety Report 13780908 (Version 1)
Quarter: 2017Q3

REPORT INFORMATION
  Report Type: Spontaneous
  Country: IT (occurrence: IT)
  Receive Date: 20170724
  Receipt Date: 20170724
  Transmission Date: 20171127
  Serious: Yes (Other)
  Sender: FDA-Public Use
  Company Number: IT-CONCORDIA PHARMACEUTICALS INC.-GSH201707-004236

PATIENT
  Age: 60 Year
  Sex: Male

DRUGS (2)
  1. AUGMENTIN [Suspect]
     Active Substance: AMOXICILLIN\CLAVULANATE POTASSIUM
     Route: 065
     Dates: end: 2017
  2. ALFUZOSIN [Suspect]
     Active Substance: ALFUZOSIN
     Indication: PRODUCT USED FOR UNKNOWN INDICATION
     Route: 048
     Dates: end: 2017

REACTIONS (2)
  - Dyspnoea [Recovering/Resolving]
  - Urticaria [Recovering/Resolving]

NARRATIVE: CASE EVENT DATE: 20170609
